FAERS Safety Report 22342177 (Version 1)
Quarter: 2023Q2

REPORT INFORMATION
  Report Type: Spontaneous
  Country: GB (occurrence: None)
  Receive Date: 20230519
  Receipt Date: 20230519
  Transmission Date: 20230721
  Serious: Yes (Other)
  Sender: FDA-Public Use
  Company Number: GB-MHRA-MED-202305120013362230-WHZSB

PATIENT
  Age: 34 Year
  Sex: Female
  Weight: 101 kg

DRUGS (1)
  1. METHOTREXATE [Suspect]
     Active Substance: METHOTREXATE
     Indication: Psoriatic arthropathy
     Dosage: 10MG STARTING DOSE
     Dates: start: 20230507

REACTIONS (4)
  - Rash macular [Not Recovered/Not Resolved]
  - Paraesthesia [Unknown]
  - Skin burning sensation [Unknown]
  - Skin tightness [Unknown]

NARRATIVE: CASE EVENT DATE: 20230501
